FAERS Safety Report 6285130-4 (Version None)
Quarter: 2009Q3

REPORT INFORMATION
  Report Type: 
  Country: None (occurrence: None)
  Receive Date: 20090727
  Receipt Date: 20090715
  Transmission Date: 20100115
  Serious: Yes (Other)
  Sender: FDA-Public Use
  Company Number: US-PFIZER INC-2009241304

PATIENT
  Sex: Male
  Weight: 68.027 kg

DRUGS (1)
  1. GABAPENTIN [Suspect]
     Indication: RESTLESS LEGS SYNDROME
     Dosage: UNK
     Dates: start: 20030101

REACTIONS (3)
  - DRUG TOXICITY [None]
  - FALL [None]
  - GAIT DISTURBANCE [None]
